FAERS Safety Report 9813422 (Version 1)
Quarter: 2014Q1

REPORT INFORMATION
  Report Type: Spontaneous
  Country: US (occurrence: None)
  Receive Date: 20140109
  Receipt Date: 20140109
  Transmission Date: 20141002
  Serious: Yes (Life-Threatening)
  Sender: FDA-Public Use
  Company Number: 2124455

PATIENT
  Age: 37 Year
  Sex: Male

DRUGS (1)
  1. MORPHINE SULFATE [Suspect]
     Indication: PRODUCT USED FOR UNKNOWN INDICATION
     Dosage: 1 MG/ML, UNKNOWN, VIA PCA, UNKNOWN, OTHER
     Dates: start: 20131217, end: 20131217

REACTIONS (6)
  - Unresponsive to stimuli [None]
  - Brain injury [None]
  - Pulse absent [None]
  - Cardio-respiratory arrest [None]
  - Drug screen false positive [None]
  - Heart rate increased [None]
